FAERS Safety Report 5074971-7 (Version None)
Quarter: 2006Q3

REPORT INFORMATION
  Report Type: 
  Country: None (occurrence: None)
  Receive Date: 20060804
  Receipt Date: 20060725
  Transmission Date: 20061208
  Serious: Yes (Disabling, Other)
  Sender: FDA-Public Use
  Company Number: 2006089670

PATIENT
  Age: 82 Year
  Sex: Female
  Weight: 56.6996 kg

DRUGS (9)
  1. NEURONTIN [Suspect]
     Indication: POST HERPETIC NEURALGIA
     Dates: start: 20040801, end: 20050501
  2. GABAPENTIN [Suspect]
     Indication: POST HERPETIC NEURALGIA
     Dosage: A FEW MONTHS AGO
  3. LYRICA [Suspect]
     Indication: NEURALGIA
     Dosage: 50 MG (50 MG, FRENQUENCY: QD   INTERVAL:  EVERY DAY)
     Dates: start: 20060722
  4. CORTISONE ACETATE [Suspect]
     Indication: NEURALGIA
     Dosage: A FEW MONTHS AGO
  5. KETAMINE HCL [Suspect]
     Indication: POST HERPETIC NEURALGIA
     Dosage: A FEW MONTHS AGO
  6. LIDOCAINE [Suspect]
     Indication: POST HERPETIC NEURALGIA
     Dosage: A FEW MONTHS AGO
  7. CYMBALTA [Concomitant]
  8. FEMHRT [Concomitant]
  9. VITAMINS (VITAMINS) [Concomitant]

REACTIONS (22)
  - ABNORMAL DREAMS [None]
  - ANOREXIA [None]
  - ASTHENIA [None]
  - CHOKING [None]
  - DIARRHOEA [None]
  - DIZZINESS [None]
  - DRUG INEFFECTIVE [None]
  - DRUG WITHDRAWAL SYNDROME [None]
  - DRY MOUTH [None]
  - FEELING JITTERY [None]
  - GAIT DISTURBANCE [None]
  - GASTROINTESTINAL DISORDER [None]
  - HEADACHE [None]
  - INCREASED UPPER AIRWAY SECRETION [None]
  - INSOMNIA [None]
  - OLIGODIPSIA [None]
  - RASH [None]
  - SOMNOLENCE [None]
  - TREATMENT NONCOMPLIANCE [None]
  - TREMOR [None]
  - VISION BLURRED [None]
  - WEIGHT DECREASED [None]
